FAERS Safety Report 24569168 (Version 1)
Quarter: 2024Q4

REPORT INFORMATION
  Report Type: Spontaneous
  Country: ES (occurrence: ES)
  Receive Date: 20241031
  Receipt Date: 20241031
  Transmission Date: 20250114
  Serious: Yes (Other)
  Sender: PFIZER
  Company Number: None

PATIENT
  Age: 37 Year
  Sex: Male

DRUGS (4)
  1. BRENTUXIMAB VEDOTIN [Suspect]
     Active Substance: BRENTUXIMAB VEDOTIN
     Indication: Hodgkin^s disease
     Dosage: UNK
     Route: 042
     Dates: start: 20230907
  2. OMEPRAZOLE [Concomitant]
     Active Substance: OMEPRAZOLE
     Indication: Lymphoma
     Dosage: 20 MILLIGRAM
     Route: 048
     Dates: start: 20230907
  3. IBUPROFENO STADA [Concomitant]
     Indication: Lymphoma
     Dosage: 600 MILLIGRAM
     Route: 048
     Dates: start: 20230906
  4. ACICLOVIR KERN PHARMA [Concomitant]
     Indication: Lymphoma
     Dosage: 800 MILLIGRAM
     Route: 048
     Dates: start: 20230907

REACTIONS (1)
  - Dermatitis exfoliative generalised [Recovered/Resolved]

NARRATIVE: CASE EVENT DATE: 20230918
